FAERS Safety Report 22042062 (Version 12)
Quarter: 2023Q4

REPORT INFORMATION
  Report Type: Spontaneous
  Country: US (occurrence: US)
  Receive Date: 20230227
  Receipt Date: 20231228
  Transmission Date: 20240110
  Serious: Yes (Other)
  Sender: FDA-Public Use
  Company Number: US-BEH-2023155642

PATIENT
  Age: 50 Year
  Sex: Female

DRUGS (8)
  1. HUMATE-P [Suspect]
     Active Substance: HUMAN COAGULATION FACTOR VIII/VON WILLEBRAND FACTOR COMPLEX
     Indication: Von Willebrand^s disease
     Dosage: 3900 INTERNATIONAL UNIT, TIW (MONDAYS, WEDNESDAYS AND FRIDAYS)
     Route: 042
     Dates: start: 202205
  2. HUMATE-P [Suspect]
     Active Substance: HUMAN COAGULATION FACTOR VIII/VON WILLEBRAND FACTOR COMPLEX
     Indication: Prophylaxis
     Dosage: UNK
     Route: 042
     Dates: start: 20230305
  3. HUMATE-P [Suspect]
     Active Substance: HUMAN COAGULATION FACTOR VIII/VON WILLEBRAND FACTOR COMPLEX
     Dosage: 3900 INTERNATIONAL UNIT, TIW (MONDAY, WEDNESDAY, FRIDAY)
     Route: 042
     Dates: start: 202206
  4. HUMATE-P [Suspect]
     Active Substance: HUMAN COAGULATION FACTOR VIII/VON WILLEBRAND FACTOR COMPLEX
     Dosage: UNK UNK, PRN
     Route: 042
     Dates: start: 20230904
  5. HUMATE-P [Suspect]
     Active Substance: HUMAN COAGULATION FACTOR VIII/VON WILLEBRAND FACTOR COMPLEX
     Dosage: UNK UNK, PRN
     Route: 042
     Dates: start: 20230907
  6. HUMATE-P [Suspect]
     Active Substance: HUMAN COAGULATION FACTOR VIII/VON WILLEBRAND FACTOR COMPLEX
     Dosage: 3900 INTERNATIONAL UNIT
     Route: 042
     Dates: start: 20230908
  7. HUMATE-P [Suspect]
     Active Substance: HUMAN COAGULATION FACTOR VIII/VON WILLEBRAND FACTOR COMPLEX
     Dosage: UNK
     Route: 042
     Dates: start: 20231004
  8. HUMATE-P [Suspect]
     Active Substance: HUMAN COAGULATION FACTOR VIII/VON WILLEBRAND FACTOR COMPLEX
     Dosage: UNK
     Route: 042
     Dates: start: 20231007

REACTIONS (42)
  - Traumatic haemorrhage [Recovered/Resolved]
  - Traumatic haemorrhage [Recovered/Resolved]
  - Fall [Unknown]
  - Catheter site haemorrhage [Recovered/Resolved]
  - Product use complaint [Recovered/Resolved]
  - Catheter site swelling [Unknown]
  - Haemorrhage [Recovered/Resolved]
  - No adverse event [Unknown]
  - Product use complaint [Unknown]
  - Feeling abnormal [Unknown]
  - Haemorrhage [Recovered/Resolved]
  - Arthralgia [Unknown]
  - Joint swelling [Unknown]
  - Wound [Recovered/Resolved]
  - Haemorrhage [Recovered/Resolved]
  - Haemorrhage [Unknown]
  - Haemarthrosis [Unknown]
  - Repetitive strain injury [Unknown]
  - Wound [Unknown]
  - Traumatic haemorrhage [Recovered/Resolved]
  - Wound [Unknown]
  - Traumatic haemorrhage [Recovered/Resolved]
  - Traumatic haemorrhage [Unknown]
  - Wound [Unknown]
  - Haemarthrosis [Not Recovered/Not Resolved]
  - Pain [Not Recovered/Not Resolved]
  - Contusion [Not Recovered/Not Resolved]
  - Joint swelling [Not Recovered/Not Resolved]
  - Traumatic haemorrhage [Unknown]
  - Wound [Unknown]
  - Arthralgia [Unknown]
  - Joint swelling [Unknown]
  - Haemarthrosis [Recovered/Resolved]
  - Arthralgia [Unknown]
  - Accident [Unknown]
  - Loss of consciousness [Unknown]
  - Contusion [Unknown]
  - Haemorrhage [Unknown]
  - Contusion [Unknown]
  - Pain [Unknown]
  - Asthenia [Unknown]
  - Impaired healing [Unknown]

NARRATIVE: CASE EVENT DATE: 20230211
